FAERS Safety Report 5885593-X (Version None)
Quarter: 2008Q3

REPORT INFORMATION
  Report Type: 
  Country: None (occurrence: None)
  Receive Date: 20080916
  Receipt Date: 20080911
  Transmission Date: 20090109
  Serious: Yes (Death, Hospitalization)
  Sender: FDA-Public Use
  Company Number: US-WYE-H05647308

PATIENT
  Age: 66 Year
  Sex: Female
  Weight: 54.3 kg

DRUGS (11)
  1. TORISEL [Suspect]
     Indication: OVARIAN EPITHELIAL CANCER
     Route: 042
     Dates: start: 20080721, end: 20080721
  2. PEPCID [Concomitant]
  3. XANAX [Concomitant]
  4. FOSAMAX [Concomitant]
  5. ZOCOR [Concomitant]
  6. ALTACE [Concomitant]
  7. TOFRANIL [Concomitant]
  8. LASIX [Concomitant]
  9. COMPAZINE [Concomitant]
  10. PLAVIX [Concomitant]
  11. CORGARD [Concomitant]

REACTIONS (5)
  - CARDIO-RESPIRATORY ARREST [None]
  - DIARRHOEA [None]
  - DYSPHAGIA [None]
  - RENAL FAILURE ACUTE [None]
  - RESPIRATORY FAILURE [None]
